FAERS Safety Report 16035481 (Version 2)
Quarter: 2019Q2

REPORT INFORMATION
  Report Type: Spontaneous
  Country: BR (occurrence: BR)
  Receive Date: 20190305
  Receipt Date: 20190405
  Transmission Date: 20190711
  Serious: Yes (Death)
  Sender: FDA-Public Use
  Company Number: BR-CELGENEUS-BRA-20181103917

PATIENT
  Age: 65 Year
  Sex: Male

DRUGS (1)
  1. VIDAZA [Suspect]
     Active Substance: AZACITIDINE
     Indication: MYELODYSPLASTIC SYNDROME
     Route: 058
     Dates: start: 201808, end: 20180817

REACTIONS (2)
  - Acute myeloid leukaemia [Fatal]
  - Unevaluable event [Unknown]

NARRATIVE: CASE EVENT DATE: 201808
